FAERS Safety Report 10239155 (Version 1)
Quarter: 2014Q2

REPORT INFORMATION
  Report Type: Spontaneous
  Country: US (occurrence: US)
  Receive Date: 20140616
  Receipt Date: 20140616
  Transmission Date: 20141212
  Serious: Yes (Other)
  Sender: FDA-Public Use
  Company Number: US-BAYER-2014-085316

PATIENT
  Age: 70 Year
  Sex: Female
  Weight: 49.89 kg

DRUGS (8)
  1. BAYER CHEWABLE LOW DOSE ASPIRIN CHERRY FLAVORED [Suspect]
     Indication: ISCHAEMIC HEART DISEASE PROPHYLAXIS
     Dosage: 1 UNIT
     Route: 048
     Dates: start: 19990710, end: 2000
  2. BAYER CHEWABLE LOW DOSE ASPIRIN CHERRY FLAVORED [Suspect]
     Indication: ISCHAEMIC HEART DISEASE PROPHYLAXIS
     Dosage: 3-4 UNITS
     Dates: start: 2008
  3. BAYER CHEWABLE LOW DOSE ASPIRIN CHERRY FLAVORED [Suspect]
     Indication: ISCHAEMIC HEART DISEASE PROPHYLAXIS
     Dosage: 3-4 UNITS
     Dates: start: 2012
  4. AMLODIPINE [Concomitant]
  5. PLAVIX [Concomitant]
  6. TOPROL [Concomitant]
  7. NITROGLYCERIN [Concomitant]
     Dosage: UNK
     Dates: start: 2008
  8. NITROGLYCERIN [Concomitant]
     Dosage: UNK
     Dates: start: 2012

REACTIONS (4)
  - Rectal haemorrhage [Recovered/Resolved]
  - Drug hypersensitivity [None]
  - Off label use [None]
  - Blood pressure increased [None]
